FAERS Safety Report 11317008 (Version 1)
Quarter: 2015Q3

REPORT INFORMATION
  Report Type: Spontaneous
  Country: US (occurrence: US)
  Receive Date: 20150728
  Receipt Date: 20150728
  Transmission Date: 20151125
  Serious: Yes (Other)
  Sender: FDA-Public Use
  Company Number: US-PFIZER INC-2015245682

PATIENT
  Age: 71 Year
  Sex: Female
  Weight: 56 kg

DRUGS (21)
  1. DOMPERIDONE [Concomitant]
     Active Substance: DOMPERIDONE
     Dosage: 10 MG TABLETS, TWO AT BREAKFAST, TWO AT LUNCH, TWO AT DINNER, AND ONE AT BEDTIME.
  2. FLUOXETINE [Concomitant]
     Active Substance: FLUOXETINE\FLUOXETINE HYDROCHLORIDE
     Dosage: 60 MG, DAILY
  3. CARAFATE [Concomitant]
     Active Substance: SUCRALFATE
     Indication: GASTROOESOPHAGEAL REFLUX DISEASE
     Dosage: UNK, AS NEEDED (ONE TO FOUR TIMES A DAY P.R.N.)
  4. LASIX [Concomitant]
     Active Substance: FUROSEMIDE
     Dosage: 40 MG, DAILY
  5. ZANTAC [Concomitant]
     Active Substance: RANITIDINE HYDROCHLORIDE
     Dosage: 150 MG, 2X/DAY (AT LUNCH AND AT BEDTIME)
  6. OXYGEN. [Concomitant]
     Active Substance: OXYGEN
     Indication: LUNG DISORDER
  7. AMLODIPINE [Concomitant]
     Active Substance: AMLODIPINE BESYLATE
     Dosage: 2.5 MG, AS NEEDED (DAILY P.R.N.)
  8. RESTASIS [Concomitant]
     Active Substance: CYCLOSPORINE
  9. OMEPRAZOLE. [Concomitant]
     Active Substance: OMEPRAZOLE
     Indication: GASTROOESOPHAGEAL REFLUX DISEASE
     Dosage: 40 MG, 2X/DAY
  10. ATIVAN [Concomitant]
     Active Substance: LORAZEPAM
     Dosage: 1 MG, AS NEEDED (THREE TIMES A DAY P.R.N.)
  11. MECLIZINE [Concomitant]
     Active Substance: MECLIZINE\MECLIZINE HYDROCHLORIDE
     Dosage: UNK, AS NEEDED
  12. CENTRUM SILVER [Concomitant]
     Active Substance: VITAMINS
     Dosage: UNK
  13. FISH OIL [Concomitant]
     Active Substance: FISH OIL
     Indication: HYPERLIPIDAEMIA
     Dosage: 1000 MG, DAILY
  14. PROBIOTIC [Concomitant]
     Active Substance: PROBIOTICS NOS
     Dosage: UNK, DAILY
  15. LETAIRIS [Suspect]
     Active Substance: AMBRISENTAN
     Indication: PULMONARY ARTERIAL HYPERTENSION
     Dosage: UNK
  16. ZYRTEC [Concomitant]
     Active Substance: CETIRIZINE HYDROCHLORIDE
     Dosage: 10 MG, DAILY
  17. OXYGEN. [Concomitant]
     Active Substance: OXYGEN
     Indication: HYPOXIA
     Dosage: 3 L, (PER NASAL CANNULA CONTINUOUSLY)
     Route: 045
  18. LEVOTHYROXINE. [Concomitant]
     Active Substance: LEVOTHYROXINE
     Dosage: 0.05 MG, DAILY
  19. PROAIR HFA [Concomitant]
     Active Substance: ALBUTEROL SULFATE
  20. REVATIO [Suspect]
     Active Substance: SILDENAFIL CITRATE
     Indication: PULMONARY ARTERIAL HYPERTENSION
     Dosage: 20 MG, 3X/DAY
     Route: 048
  21. POTASSIUM [Concomitant]
     Active Substance: POTASSIUM
     Dosage: 10 MEQ, DAILY

REACTIONS (5)
  - Hypoxia [Unknown]
  - Exercise tolerance decreased [Unknown]
  - Chest discomfort [Unknown]
  - Disease progression [Unknown]
  - Pulmonary arterial hypertension [Unknown]
